FAERS Safety Report 21701182 (Version 1)
Quarter: 2022Q4

REPORT INFORMATION
  Report Type: Other
  Country: US (occurrence: US)
  Receive Date: 20221208
  Receipt Date: 20221208
  Transmission Date: 20230113
  Serious: Yes (Other)
  Sender: FDA-Public Use
  Company Number: US-HLS-202003989

PATIENT
  Age: 55 Year
  Sex: Male

DRUGS (6)
  1. CLOZAPINE [Suspect]
     Active Substance: CLOZAPINE
     Indication: Schizophrenia
     Route: 065
  2. CLOZAPINE [Suspect]
     Active Substance: CLOZAPINE
     Indication: Schizophrenia
     Dosage: CROSS TAPERED AND STABILIZED ON 125 MG DIALY
     Route: 065
  3. METFORMIN [Concomitant]
     Active Substance: METFORMIN HYDROCHLORIDE
     Indication: Diabetes mellitus
     Route: 048
  4. RISPERIDONE [Concomitant]
     Active Substance: RISPERIDONE
     Indication: Psychotic disorder
     Dosage: 2MG PO TWICE DAILY OPTIMIZED TO 8MG TOTAL DAILY?DOSE
     Route: 048
  5. ATORVASTATIN [Concomitant]
     Active Substance: ATORVASTATIN
     Indication: Dyslipidaemia
     Dosage: AT BEDTIME
     Route: 065
  6. Lucrasidone [Concomitant]
     Route: 048

REACTIONS (8)
  - Pneumonitis aspiration [Unknown]
  - Blood pressure increased [Unknown]
  - Fluid imbalance [Unknown]
  - Leukocytosis [Recovered/Resolved]
  - Blood creatine phosphokinase increased [Unknown]
  - Tachycardia [Unknown]
  - Bundle branch block right [Unknown]
  - Systemic inflammatory response syndrome [Unknown]
